FAERS Safety Report 7138736-4 (Version None)
Quarter: 2010Q4

REPORT INFORMATION
  Report Type: 
  Country: None (occurrence: None)
  Receive Date: 20101206
  Receipt Date: 20101129
  Transmission Date: 20110411
  Serious: Yes (Other)
  Sender: FDA-Public Use
  Company Number: DE-PFIZER INC-2010159943

PATIENT
  Sex: Female

DRUGS (1)
  1. CLINDAMYCIN HCL [Suspect]
     Indication: TOOTH EXTRACTION
     Dosage: 1800 IU, DAILY
     Dates: start: 20100901

REACTIONS (2)
  - ABSCESS [None]
  - SIALOADENITIS [None]
